FAERS Safety Report 22161586 (Version 1)
Quarter: 2023Q1

REPORT INFORMATION
  Report Type: Spontaneous
  Country: US (occurrence: None)
  Receive Date: 20230330
  Receipt Date: 20230330
  Transmission Date: 20230418
  Serious: Yes (Hospitalization)
  Sender: FDA-Public Use
  Company Number: None

PATIENT
  Sex: Male

DRUGS (1)
  1. TEMOZOLOMIDE [Suspect]
     Active Substance: TEMOZOLOMIDE
     Dosage: FREQUENCY : DAILY;?
     Route: 048

REACTIONS (7)
  - Constipation [None]
  - Vomiting [None]
  - Gastric ulcer haemorrhage [None]
  - Urinary tract infection [None]
  - Oedema peripheral [None]
  - Flatulence [None]
  - Abdominal distension [None]
